FAERS Safety Report 8193785-2 (Version None)
Quarter: 2012Q1

REPORT INFORMATION
  Report Type: 
  Country: None (occurrence: None)
  Receive Date: 20120308
  Receipt Date: 20120305
  Transmission Date: 20120608
  Serious: Yes (Other)
  Sender: FDA-Public Use
  Company Number: US-PFIZER INC-2012057977

PATIENT
  Sex: Male
  Weight: 150 kg

DRUGS (13)
  1. LASIX [Concomitant]
     Indication: HYPERTENSION
     Dosage: 80 MG, 1X/DAY
  2. ACETYLSALICYLIC ACID [Concomitant]
     Indication: COAGULOPATHY
     Dosage: 81 MG, 1X/DAY
  3. LIPITOR [Suspect]
     Indication: BLOOD TRIGLYCERIDES
  4. ZAROXOLYN [Concomitant]
     Indication: WEIGHT
     Dosage: UNK
  5. FLUTICASONE PROPIONATE [Concomitant]
     Indication: SINUS CONGESTION
     Dosage: (TWO SPRAYS PER NOSTRIL DAILY)
  6. SPIRONOLACTONE [Concomitant]
     Dosage: 25 MG, 2X/DAY
  7. POTASSIUM CHLORIDE [Concomitant]
     Dosage: 40 MEQ, (DAILY)
  8. WARFARIN [Concomitant]
     Indication: PROPHYLAXIS
     Dosage: UNK
  9. HYTRIN [Concomitant]
     Indication: PROSTATIC DISORDER
     Dosage: 10 MG, 1X/DAY
  10. LEVOTHYROXINE [Concomitant]
     Indication: HYPERTHYROIDISM
     Dosage: 75 UG, DAILY
  11. XANAX [Concomitant]
     Indication: SLEEP DISORDER
     Dosage: 2 MG, (DAILY)
  12. ALLOPURINOL [Concomitant]
     Indication: GOUT
     Dosage: 125 MG, (DAILY)
  13. LIPITOR [Suspect]
     Indication: BLOOD CHOLESTEROL INCREASED
     Dosage: 20 MG, (DAILY)
     Route: 048
     Dates: start: 20110101

REACTIONS (10)
  - FEELING ABNORMAL [None]
  - HYPOTENSION [None]
  - GAIT DISTURBANCE [None]
  - MUSCLE TIGHTNESS [None]
  - MUSCLE SPASMS [None]
  - BLOOD UREA INCREASED [None]
  - MUSCULAR WEAKNESS [None]
  - BLOOD CREATININE INCREASED [None]
  - RENAL DISORDER [None]
  - MUSCULOSKELETAL STIFFNESS [None]
